FAERS Safety Report 12292854 (Version 1)
Quarter: 2016Q2

REPORT INFORMATION
  Report Type: Report from Study
  Country: US (occurrence: US)
  Receive Date: 20160421
  Receipt Date: 20160421
  Transmission Date: 20160815
  Serious: Yes (Death, Hospitalization, Other)
  Sender: FDA-Public Use
  Company Number: US-GILEAD-2016-0209215

PATIENT
  Age: 49 Year
  Sex: Male

DRUGS (4)
  1. AMBRISENTAN [Suspect]
     Active Substance: AMBRISENTAN
     Indication: PRODUCT USED FOR UNKNOWN INDICATION
     Dosage: 10 MG, QD
     Route: 065
     Dates: start: 20130211
  2. COUMADIN [Concomitant]
     Active Substance: WARFARIN SODIUM
  3. REMODULIN [Suspect]
     Active Substance: TREPROSTINIL
     Indication: PRODUCT USED FOR UNKNOWN INDICATION
     Route: 065
  4. SILDENAFIL. [Concomitant]
     Active Substance: SILDENAFIL

REACTIONS (9)
  - Haemorrhage [Unknown]
  - Nasopharyngitis [Unknown]
  - Dyspnoea [Unknown]
  - Death [Fatal]
  - Complication associated with device [Unknown]
  - Central venous catheterisation [Not Recovered/Not Resolved]
  - Fatigue [Unknown]
  - Feeling abnormal [Unknown]
  - Cough [Unknown]

NARRATIVE: CASE EVENT DATE: 20160417
